FAERS Safety Report 4431224-5 (Version None)
Quarter: 2004Q3

REPORT INFORMATION
  Report Type: 
  Country: None (occurrence: None)
  Receive Date: 20040818
  Receipt Date: 20040805
  Transmission Date: 20050211
  Serious: Yes (Death, Hospitalization)
  Sender: FDA-Public Use
  Company Number: 2004047592

PATIENT
  Age: 72 Year
  Sex: Male

DRUGS (16)
  1. NORVASC [Suspect]
     Indication: ANGINA PECTORIS
     Dosage: 5 MG (5 MG, 1 IN 1 D), ORAL
     Route: 048
     Dates: start: 20031024, end: 20030624
  2. SULFASALAZINE [Suspect]
     Indication: RHEUMATOID ARTHRITIS
     Dosage: 1000 MG (500 MG, 2 IN 1 D), ORAL
     Route: 048
     Dates: start: 20030523, end: 20040415
  3. BUCILLAMINE (BUCILLAMINE) [Concomitant]
  4. NICORANDIL (NICORANDIL) [Concomitant]
  5. LACTOBACILLUS BIFIDUS, LYOPHILIZED (LACTOBACILLUS BIFIDUS, LYOPHILIZED [Concomitant]
  6. RYO-KEI-ZYUTU-KAN-TO (HERBAL EXTRACTS NOS) [Concomitant]
  7. MELOXICAM (MELOXICAM) [Concomitant]
  8. NIZATIDINE [Concomitant]
  9. BROTIZOLAM (BROTIZOLAM) [Concomitant]
  10. DICLOFENAC SODIUM [Concomitant]
  11. NITROGLYCERIN [Concomitant]
  12. FELBINAC (FELBINAC) [Concomitant]
  13. MAGNESIUM OXIDE (MAGNESIUM OXIDE) [Concomitant]
  14. GLYCEROL (GLYCEROL) [Concomitant]
  15. MISOPROSTOL [Concomitant]
  16. NIFEDIPINE [Concomitant]

REACTIONS (9)
  - BRONCHITIS ACUTE [None]
  - DEHYDRATION [None]
  - DEPRESSED LEVEL OF CONSCIOUSNESS [None]
  - DRUG INEFFECTIVE [None]
  - HAEMOPTYSIS [None]
  - HYPOTENSION [None]
  - OEDEMA PERIPHERAL [None]
  - PLEURAL EFFUSION [None]
  - PNEUMONIA [None]
